FAERS Safety Report 6029084-4 (Version None)
Quarter: 2008Q4

REPORT INFORMATION
  Report Type: 
  Country: None (occurrence: None)
  Receive Date: 20081231
  Receipt Date: 20080310
  Transmission Date: 20090506
  Serious: Yes (Hospitalization)
  Sender: FDA-Public Use
  Company Number: 2008AL012541

PATIENT
  Age: 22 Year
  Sex: Male

DRUGS (7)
  1. CITALOPRAM HYDROBROMIDE [Suspect]
     Dosage: 20 MG
  2. ZOPICLONE [Concomitant]
  3. RISPERIDONE [Concomitant]
  4. COCAINE [Concomitant]
  5. CANNABIS [Concomitant]
  6. QUETIAPINE FUMARATE [Concomitant]
  7. ALCOHOL [Concomitant]

REACTIONS (4)
  - ALCOHOL USE [None]
  - COMA [None]
  - DRUG ABUSE [None]
  - OVERDOSE [None]
